FAERS Safety Report 26042420 (Version 3)
Quarter: 2025Q4

REPORT INFORMATION
  Report Type: Spontaneous
  Country: JP (occurrence: JP)
  Receive Date: 20251113
  Receipt Date: 20251211
  Transmission Date: 20260118
  Serious: Yes (Hospitalization)
  Sender: ELI LILLY AND COMPANY
  Company Number: JP-ELI_LILLY_AND_COMPANY-JP202511012805

PATIENT
  Age: 24 Year
  Sex: Female
  Weight: 50 kg

DRUGS (2)
  1. MOUNJARO [Suspect]
     Active Substance: TIRZEPATIDE
     Indication: Weight control
     Dosage: UNK
     Route: 058
  2. MOUNJARO [Suspect]
     Active Substance: TIRZEPATIDE
     Dosage: 5 MG
     Route: 058

REACTIONS (4)
  - Lumbar vertebral fracture [Not Recovered/Not Resolved]
  - Osteoporosis [Unknown]
  - Off label use [Unknown]
  - Weight decreased [Unknown]

NARRATIVE: CASE EVENT DATE: 20250822
